FAERS Safety Report 7600296-9 (Version None)
Quarter: 2011Q3

REPORT INFORMATION
  Report Type: 
  Country: None (occurrence: None)
  Receive Date: 20110706
  Receipt Date: 20110706
  Transmission Date: 20111222
  Serious: Yes (Other)
  Sender: FDA-Public Use
  Company Number: None

PATIENT
  Age: 56 Year
  Sex: Female
  Weight: 50.8029 kg

DRUGS (1)
  1. RECLAST ORDERED BY ANOTHER PROVIDER  HIS INFO AVAILABLE UPON REQUEST [Suspect]
     Indication: OSTEOPOROSIS
     Dosage: 1 DOSE
     Dates: start: 20010101

REACTIONS (1)
  - OSTEONECROSIS [None]
